FAERS Safety Report 6241876-5 (Version None)
Quarter: 2009Q2

REPORT INFORMATION
  Report Type: 
  Country: None (occurrence: None)
  Receive Date: 20090623
  Receipt Date: 20090611
  Transmission Date: 20091009
  Serious: Yes (Other)
  Sender: FDA-Public Use
  Company Number: JP-PFIZER INC-2009227576

PATIENT
  Age: 24 Year

DRUGS (1)
  1. CHAMPIX [Suspect]
     Dosage: UNK
     Dates: start: 20090415, end: 20090609

REACTIONS (3)
  - INTENTIONAL OVERDOSE [None]
  - INTENTIONAL SELF-INJURY [None]
  - SUICIDAL IDEATION [None]
